FAERS Safety Report 9778890 (Version 1)
Quarter: 2013Q4

REPORT INFORMATION
  Report Type: Spontaneous
  Country: CN (occurrence: HK)
  Receive Date: 20131223
  Receipt Date: 20131223
  Transmission Date: 20140711
  Serious: Yes (Other)
  Sender: FDA-Public Use
  Company Number: CN-JHP PHARMACEUTICALS, LLC-JHP201300763

PATIENT
  Age: 26 Year
  Sex: Female

DRUGS (1)
  1. KETALAR [Suspect]
     Indication: DRUG ABUSE
     Dosage: 8-10 TABLETS DAILY - ILLICIT SOURCES
     Route: 048
     Dates: start: 2000

REACTIONS (2)
  - Bladder cancer [Recovering/Resolving]
  - Cystitis noninfective [Unknown]
